FAERS Safety Report 21421652 (Version 1)
Quarter: 2022Q4

REPORT INFORMATION
  Report Type: Report from Study
  Country: US (occurrence: US)
  Receive Date: 20221007
  Receipt Date: 20221007
  Transmission Date: 20230112
  Serious: Yes (Other)
  Sender: FDA-Public Use
  Company Number: US-ABBVIE-4139044

PATIENT
  Sex: Female

DRUGS (2)
  1. IMBRUVICA [Suspect]
     Active Substance: IBRUTINIB
     Indication: Chronic lymphocytic leukaemia
     Route: 048
     Dates: start: 202110
  2. Baclofe [Concomitant]
     Indication: Product used for unknown indication

REACTIONS (4)
  - Spinal fracture [Unknown]
  - Headache [Unknown]
  - Occipital neuralgia [Unknown]
  - Nail disorder [Unknown]
